FAERS Safety Report 6863998-8 (Version None)
Quarter: 2010Q3

REPORT INFORMATION
  Report Type: 
  Country: None (occurrence: None)
  Receive Date: 20100721
  Receipt Date: 20080317
  Transmission Date: 20110219
  Serious: No
  Sender: FDA-Public Use
  Company Number: US-PFIZER INC-2008024303

PATIENT
  Sex: Female
  Weight: 66.8 kg

DRUGS (6)
  1. CHANTIX [Suspect]
     Indication: SMOKING CESSATION THERAPY
     Dates: start: 20080201
  2. METHADONE HCL [Concomitant]
  3. METHOCARBAMOL [Concomitant]
  4. XANAX [Concomitant]
     Indication: ANXIETY
  5. COZAAR [Concomitant]
     Indication: HYPERTENSION
  6. ZYPREXA [Concomitant]
     Indication: DEPRESSION

REACTIONS (1)
  - OEDEMA PERIPHERAL [None]
